FAERS Safety Report 9196058 (Version 2)
Quarter: 2013Q2

REPORT INFORMATION
  Report Type: Spontaneous
  Country: ZA (occurrence: ZA)
  Receive Date: 20130328
  Receipt Date: 20130416
  Transmission Date: 20140414
  Serious: Yes (Hospitalization, Other)
  Sender: FDA-Public Use
  Company Number: ZA-RANBAXY-2013RR-66549

PATIENT
  Age: 71 Month
  Sex: Female

DRUGS (11)
  1. LINEZOLIDE [Suspect]
     Indication: DISSEMINATED TUBERCULOSIS
     Dosage: 300 MG/DAY
     Route: 048
  2. CLARITHROMYCIN [Suspect]
     Indication: DISSEMINATED TUBERCULOSIS
     Dosage: THE DRUG WAS STOPPED FOR 10 DAYS
     Route: 065
  3. AMOXICILLIN/CLAVULANIC ACID [Suspect]
     Indication: DISSEMINATED TUBERCULOSIS
     Dosage: THE DRUG WAS STOPPED FOR 10 DAYS
     Route: 065
  4. MOXIFLOXACIN [Suspect]
     Indication: DISSEMINATED TUBERCULOSIS
     Dosage: THE DRUG WAS STOPPED FOR 10 DAYS
     Route: 065
  5. CAPREOMYCIN [Suspect]
     Indication: DISSEMINATED TUBERCULOSIS
     Dosage: THE DRUG WAS STOPPED FOR 10 DAYS
     Route: 065
  6. AMINOSALICYLIC ACID [Suspect]
     Indication: DISSEMINATED TUBERCULOSIS
     Dosage: THE DRUG WAS STOPPED FOR 10 DAYS
     Route: 065
  7. TERIZIDONE [Suspect]
     Indication: DISSEMINATED TUBERCULOSIS
     Dosage: THE DRUG WAS STOPPED FOR 10 DAYS
     Route: 065
  8. CLOFAZIMINE [Suspect]
     Indication: DISSEMINATED TUBERCULOSIS
     Dosage: THE DRUG WAS STOPPED FOR 10 DAYS
     Route: 065
  9. ABACAVIR [Suspect]
     Indication: HIV INFECTION
     Dosage: THE DRUG WAS STOPPED FOR 10 DAYS
     Route: 065
  10. LAMIVUDINE [Suspect]
     Indication: HIV INFECTION
     Dosage: THE DRUG WAS STOPPED FOR 10 DAYS
     Route: 065
  11. EFAVIRENZ [Suspect]
     Indication: HIV INFECTION
     Dosage: THE DRUG WAS STOPPED FOR 10 DAYS
     Route: 065

REACTIONS (5)
  - Pancreatitis [Recovered/Resolved]
  - Lactic acidosis [Recovered/Resolved]
  - Hypothyroidism [Unknown]
  - Neutropenia [Unknown]
  - Transaminases increased [Unknown]
